FAERS Safety Report 12730223 (Version 1)
Quarter: 2016Q3

REPORT INFORMATION
  Report Type: Spontaneous
  Country: CH (occurrence: CH)
  Receive Date: 20160909
  Receipt Date: 20160909
  Transmission Date: 20161109
  Serious: Yes (Hospitalization, Other)
  Sender: FDA-Public Use
  Company Number: CH-009507513-1609CHE002066

PATIENT
  Age: 1 Day
  Sex: Female
  Weight: 2.41 kg

DRUGS (1)
  1. PROGLICEM [Suspect]
     Active Substance: DIAZOXIDE
     Dosage: UNK
     Route: 064

REACTIONS (1)
  - Foetal growth restriction [Unknown]
